FAERS Safety Report 7387023-8 (Version None)
Quarter: 2011Q1

REPORT INFORMATION
  Report Type: 
  Country: None (occurrence: None)
  Receive Date: 20110331
  Receipt Date: 20110324
  Transmission Date: 20110831
  Serious: Yes (Hospitalization)
  Sender: FDA-Public Use
  Company Number: CA-AMGEN-CANSP2011016175

PATIENT
  Age: 75 Year
  Sex: Female

DRUGS (10)
  1. RITUXIMAB [Concomitant]
     Dosage: 375 MG/M2, PER CHEMO REGIM
  2. ONDANSETRON [Concomitant]
  3. DIPHENHYDRAMINE HCL [Concomitant]
  4. PREDNISONE [Concomitant]
     Dosage: 100 MG, PER CHEMO REGIM
     Route: 048
  5. ACETAMINOPHEN [Concomitant]
  6. DEXAMETHASONE [Concomitant]
  7. DOXORUBICIN [Concomitant]
     Dosage: 50 MG/M2, PER CHEMO REGIM
  8. VINCRISTINE [Concomitant]
     Dosage: 1.4 MG/M2, PER CHEMO REGIM
  9. NEUPOGEN [Suspect]
     Indication: CHEMOTHERAPY
     Dosage: 300 A?G, PER CHEMO REGIM
     Route: 058
     Dates: start: 20110314
  10. CYCLOPHOSPHAMIDE [Concomitant]
     Dosage: 750 MG/M2, PER CHEMO REGIM

REACTIONS (1)
  - STRESS CARDIOMYOPATHY [None]
